FAERS Safety Report 9557154 (Version 1)
Quarter: 2013Q3

REPORT INFORMATION
  Report Type: Spontaneous
  Country: US (occurrence: None)
  Receive Date: 20130726
  Receipt Date: 20130726
  Transmission Date: 20140515
  Serious: Yes (Hospitalization)
  Sender: FDA-Public Use
  Company Number: UTC-025095

PATIENT
  Age: 51 Year
  Sex: Male
  Weight: 84 kg

DRUGS (4)
  1. REMODULIN [Suspect]
     Indication: PULMONARY HYPERTENSION
     Dosage: 122.4 UG/KG (0.085 UG/KG, 1 IN 1 MIN), INTRAVENOUS DRIP
     Route: 041
     Dates: start: 20050419
  2. REMODULIN [Suspect]
     Indication: COR PULMONALE CHRONIC
     Dosage: 122.4 UG/KG (0.085 UG/KG, 1 IN 1 MIN), INTRAVENOUS DRIP
     Route: 041
     Dates: start: 20050419
  3. REMODULIN [Suspect]
     Indication: PULMONARY ARTERIAL HYPERTENSION
     Dosage: 122.4 UG/KG (0.085 UG/KG, 1 IN 1 MIN), INTRAVENOUS DRIP
     Route: 041
     Dates: start: 20050419
  4. COUMADIN (WARFARIN SODIUM) [Concomitant]

REACTIONS (2)
  - Device related sepsis [None]
  - Disease recurrence [None]
